FAERS Safety Report 24026900 (Version 2)
Quarter: 2024Q3

REPORT INFORMATION
  Report Type: Report from Study
  Country: RS (occurrence: RS)
  Receive Date: 20240628
  Receipt Date: 20240710
  Transmission Date: 20241017
  Serious: No
  Sender: ROCHE
  Company Number: RS-ROCHE-3566608

PATIENT
  Age: 44 Year
  Sex: Female
  Weight: 68.0 kg

DRUGS (4)
  1. ALECTINIB [Suspect]
     Active Substance: ALECTINIB
     Indication: Lung cancer metastatic
     Route: 048
     Dates: start: 20221101
  2. LEVOFLOXACIN [Concomitant]
     Active Substance: LEVOFLOXACIN
     Route: 048
     Dates: start: 20231218, end: 20231222
  3. ALECTINIB [Concomitant]
     Active Substance: ALECTINIB
     Dates: start: 20211206
  4. VIUSID [Concomitant]
     Dates: start: 20240103, end: 20240109

REACTIONS (1)
  - Respiratory tract infection [Recovered/Resolved]

NARRATIVE: CASE EVENT DATE: 20231217
